FAERS Safety Report 6579602-2 (Version None)
Quarter: 2010Q1

REPORT INFORMATION
  Report Type: 
  Country: None (occurrence: None)
  Receive Date: 20100212
  Receipt Date: 20100208
  Transmission Date: 20100710
  Serious: Yes (Life-Threatening)
  Sender: FDA-Public Use
  Company Number: JP-BAYER-201010671BYL

PATIENT
  Age: 74 Year
  Sex: Male
  Weight: 48 kg

DRUGS (8)
  1. NEXAVAR [Suspect]
     Indication: HEPATIC NEOPLASM MALIGNANT
     Dosage: TOTAL DAILY DOSE: 800 MG  UNIT DOSE: 200 MG
     Route: 048
     Dates: start: 20090807, end: 20090907
  2. PROMAC [Concomitant]
     Route: 048
     Dates: start: 20060607
  3. GLAKAY [Concomitant]
     Route: 048
     Dates: start: 20060607
  4. URSO 250 [Concomitant]
     Route: 048
     Dates: start: 20060607
  5. LENDORMIN D [Concomitant]
     Route: 048
     Dates: start: 20060607
  6. ARICEPT [Concomitant]
     Route: 048
     Dates: start: 20060607
  7. AMINOLEBAN EN [Concomitant]
     Route: 048
     Dates: start: 20060607
  8. UREPEARL [Concomitant]
     Indication: PROPHYLAXIS
     Route: 061
     Dates: start: 20090807

REACTIONS (2)
  - DIARRHOEA [None]
  - HEPATIC FUNCTION ABNORMAL [None]
